FAERS Safety Report 14639391 (Version 8)
Quarter: 2019Q1

REPORT INFORMATION
  Report Type: Report from Study
  Country: ES (occurrence: ES)
  Receive Date: 20180315
  Receipt Date: 20190204
  Transmission Date: 20190417
  Serious: Yes (Death, Life-Threatening, Hospitalization, Disabling)
  Sender: FDA-Public Use
  Company Number: ES-ROCHE-2080374

PATIENT
  Age: 57 Year
  Sex: Male
  Weight: 65.7 kg

DRUGS (17)
  1. LEVOFLOXACIN. [Concomitant]
     Active Substance: LEVOFLOXACIN
     Indication: CHRONIC OBSTRUCTIVE PULMONARY DISEASE
     Route: 065
     Dates: start: 20180205, end: 20180217
  2. DOXYLAMINE [Concomitant]
     Active Substance: DOXYLAMINE
     Indication: HYPERCHOLESTEROLAEMIA
     Route: 065
     Dates: start: 201608
  3. DEXAMETHASONE. [Concomitant]
     Active Substance: DEXAMETHASONE
     Route: 065
     Dates: start: 20180222, end: 20180222
  4. PREGABALIN. [Concomitant]
     Active Substance: PREGABALIN
     Indication: NEUROPATHY PERIPHERAL
  5. DEXAMETHASONE. [Concomitant]
     Active Substance: DEXAMETHASONE
     Route: 065
     Dates: start: 20180223, end: 20180228
  6. ATORVASTATIN [Concomitant]
     Active Substance: ATORVASTATIN
     Indication: HYPERCHOLESTEROLAEMIA
  7. DOXYLAMINE [Concomitant]
     Active Substance: DOXYLAMINE
     Indication: INSOMNIA
  8. TRAMADOL. [Concomitant]
     Active Substance: TRAMADOL
     Indication: TUMOUR PAIN
  9. ACETYLCYSTEINE. [Concomitant]
     Active Substance: ACETYLCYSTEINE
     Route: 065
     Dates: start: 20180205
  10. FUROSEMIDE. [Concomitant]
     Active Substance: FUROSEMIDE
     Indication: HYPERCALCAEMIA
     Route: 065
     Dates: start: 20180207
  11. ZOLEDRONIC ACID [Concomitant]
     Active Substance: ZOLEDRONIC ACID
     Indication: HYPERCALCAEMIA
     Route: 065
     Dates: start: 20180207
  12. LEVOFLOXACIN. [Concomitant]
     Active Substance: LEVOFLOXACIN
     Route: 065
     Dates: start: 20180307
  13. LEVOTHYROXINE. [Concomitant]
     Active Substance: LEVOTHYROXINE
     Indication: HYPOTHYROIDISM
  14. DEXAMETHASONE. [Concomitant]
     Active Substance: DEXAMETHASONE
     Indication: RESPIRATORY TRACT INFECTION
     Route: 065
     Dates: start: 20180205, end: 20180214
  15. RO 6874281 (FAP IL2V MAB) [Suspect]
     Active Substance: RO-6874281
     Indication: NEOPLASM
     Dosage: THIS WAS ALSO THE MOST RECENT DOSE PRIOR TO SAE ONSET, ADMINISTERED AT 15:05?15 MG FIRST DOSE, UP-TI
     Route: 042
     Dates: start: 20180219
  16. ATEZOLIZUMAB. [Suspect]
     Active Substance: ATEZOLIZUMAB
     Indication: NEOPLASM
     Dosage: START DATE: 19/FEB/2018 ?THIS WAS ALSO THE MOST RECENT DOSE PRIOR TO SAE ONSET, ADMINISTERED AT 12:0
     Route: 042
     Dates: start: 20180219
  17. PARACETAMOL [Concomitant]
     Active Substance: ACETAMINOPHEN
     Indication: TUMOUR PAIN

REACTIONS (4)
  - Hypokalaemia [Recovered/Resolved]
  - Hypophosphataemia [Not Recovered/Not Resolved]
  - Respiratory tract infection [Recovered/Resolved with Sequelae]
  - Aspiration [Fatal]

NARRATIVE: CASE EVENT DATE: 20180220
